FAERS Safety Report 18716338 (Version 6)
Quarter: 2021Q4

REPORT INFORMATION
  Report Type: Report from Study
  Country: US (occurrence: US)
  Receive Date: 20210108
  Receipt Date: 20211106
  Transmission Date: 20220304
  Serious: Yes (Other)
  Sender: FDA-Public Use
  Company Number: NVSC2021US003324

PATIENT
  Age: 68 Year
  Sex: Male

DRUGS (6)
  1. ENTRESTO [Suspect]
     Active Substance: SACUBITRIL\VALSARTAN
     Indication: Cardiac failure
     Dosage: 1 DF, BID (49/51 MG)
     Route: 048
     Dates: start: 201911
  2. ENTRESTO [Suspect]
     Active Substance: SACUBITRIL\VALSARTAN
     Dosage: 1 DF, QD (49/51 MG)
     Route: 048
     Dates: start: 20201204
  3. ENTRESTO [Suspect]
     Active Substance: SACUBITRIL\VALSARTAN
     Dosage: 1 DF, BID (97/103 MG)
     Route: 048
     Dates: start: 202011
  4. METOPROLOL [Suspect]
     Active Substance: METOPROLOL
     Indication: Product used for unknown indication
     Route: 065
     Dates: start: 202011
  5. ALLOPURINOL [Suspect]
     Active Substance: ALLOPURINOL
     Indication: Nephrolithiasis
     Route: 065
  6. POTASSIUM CITRATE [Suspect]
     Active Substance: POTASSIUM CITRATE
     Indication: Nephrolithiasis
     Route: 065

REACTIONS (8)
  - Nephrolithiasis [Unknown]
  - Blood sodium decreased [Unknown]
  - Dyspnoea [Unknown]
  - Heart rate decreased [Unknown]
  - Brain natriuretic peptide decreased [Unknown]
  - Incorrect dose administered [Unknown]
  - Product dispensing error [Unknown]
  - Urine sodium decreased [Unknown]

NARRATIVE: CASE EVENT DATE: 20201204
